FAERS Safety Report 9698842 (Version 1)
Quarter: 2013Q4

REPORT INFORMATION
  Report Type: Spontaneous
  Country: US (occurrence: None)
  Receive Date: 20131118
  Receipt Date: 20131118
  Transmission Date: 20140711
  Serious: Yes (Hospitalization)
  Sender: FDA-Public Use
  Company Number: 2013110041

PATIENT
  Age: 72 Year
  Sex: Female

DRUGS (11)
  1. TOREM [Suspect]
     Indication: HYPERTENSION
     Dosage: 1-0-0 (5 MG, 1 IN 1 D), ORAL
     Route: 048
     Dates: start: 201309
  2. REMERON [Suspect]
     Dosage: 0-0-1 (30 MG, 1 IN 1 D), ORAL
     Route: 048
  3. CIPRALEX [Suspect]
     Indication: DEPRESSION
     Dosage: 1-0-0 (10 MG, 1 IN 1 D), ORAL
     Route: 048
  4. CONCOR (BISOPROLOL FUMARATE) [Concomitant]
  5. NORVASC (AMLODIPINE BESILATE) [Concomitant]
  6. PANTOPRAZOL (PANTOPRAZOLE) [Concomitant]
  7. DUPHALAC (GALACTOSE, LACTULOSE, LACTOSE) [Concomitant]
  8. NICOTINELL PATCH TTS (NICOTINE (TRANSDERMAL PATCH) [Concomitant]
  9. BENERVA (THIAMINE HYDROCHLORIDE) [Concomitant]
  10. BECOZYM FORTE (PYRIDOXINE HYDROCHLORIDE, BIOTIN, CYANOCOBALAMIN, RIBOFLAVIN, THIAMINE HYDROCHLORIDE, CALCIUM PANTIOTHENATE) [Concomitant]
  11. KONAKION (PHYTOMENADIONE) [Concomitant]

REACTIONS (8)
  - Confusional state [None]
  - Disturbance in attention [None]
  - Slow response to stimuli [None]
  - Disorientation [None]
  - Hyponatraemia [None]
  - Drug interaction [None]
  - Anxiety [None]
  - Delirium [None]
